FAERS Safety Report 6642345-0 (Version None)
Quarter: 2010Q1

REPORT INFORMATION
  Report Type: 
  Country: None (occurrence: None)
  Receive Date: 20100319
  Receipt Date: 20100306
  Transmission Date: 20100710
  Serious: Yes (Hospitalization)
  Sender: FDA-Public Use
  Company Number: NL-MEDIMMUNE-MEDI-0010731

PATIENT
  Sex: Female

DRUGS (1)
  1. SYNAGIS [Suspect]
     Route: 030
     Dates: start: 20100212, end: 20100212

REACTIONS (5)
  - ANAEMIA [None]
  - BODY TEMPERATURE DECREASED [None]
  - HYPOPHAGIA [None]
  - OXYGEN SATURATION DECREASED [None]
  - RESPIRATORY SYNCYTIAL VIRUS INFECTION [None]
